FAERS Safety Report 10087357 (Version 2)
Quarter: 2014Q2

REPORT INFORMATION
  Report Type: Spontaneous
  Country: US (occurrence: US)
  Receive Date: 20140418
  Receipt Date: 20140418
  Transmission Date: 20141212
  Serious: No
  Sender: FDA-Public Use
  Company Number: US-PURDUE-USA-2014-0112128

PATIENT
  Sex: Female

DRUGS (1)
  1. OXYCONTIN (NDA 22-272) [Suspect]
     Indication: PAIN
     Dosage: 10 MG, TID
     Route: 048

REACTIONS (6)
  - Drug withdrawal syndrome [Unknown]
  - Drug effect decreased [Unknown]
  - Therapeutic response delayed [Unknown]
  - Chills [Unknown]
  - Abdominal pain upper [Unknown]
  - Malaise [Unknown]
